FAERS Safety Report 5853430-5 (Version None)
Quarter: 2008Q3

REPORT INFORMATION
  Report Type: 
  Country: None (occurrence: None)
  Receive Date: 20080820
  Receipt Date: 20080807
  Transmission Date: 20090109
  Serious: Yes (Life-Threatening)
  Sender: FDA-Public Use
  Company Number: 19998

PATIENT
  Age: 81 Year
  Sex: Female

DRUGS (13)
  1. PAMIDRONATE DISODIUM [Suspect]
     Indication: OSTEOPOROSIS
     Dosage: 30 MG UNK IV
     Route: 042
     Dates: start: 20080702, end: 20080702
  2. ALLOPURINOL [Concomitant]
  3. ATORVASTATIN [Concomitant]
  4. CALCICHEW D3 [Concomitant]
  5. CLOPIDOGREL [Concomitant]
  6. DIGOXIN [Concomitant]
  7. FUROSEMIDE [Concomitant]
  8. LANSOPRAZOLE [Concomitant]
  9. NEBIVOLOL HCL [Concomitant]
  10. PREDNISOLON [Concomitant]
  11. QUININE [Concomitant]
  12. RAMIPRIL [Concomitant]
  13. TEMAZEPAM [Concomitant]

REACTIONS (1)
  - ACUTE MYOCARDIAL INFARCTION [None]
